FAERS Safety Report 8350975-3 (Version None)
Quarter: 2012Q2

REPORT INFORMATION
  Report Type: 
  Country: None (occurrence: None)
  Receive Date: 20120510
  Receipt Date: 20120504
  Transmission Date: 20120825
  Serious: Yes (Life-Threatening, Other)
  Sender: FDA-Public Use
  Company Number: RU-CELGENEUS-251-50794-12022118

PATIENT
  Sex: Male
  Weight: 68.5 kg

DRUGS (5)
  1. VIDAZA [Suspect]
     Indication: MYELODYSPLASTIC SYNDROME
     Route: 058
     Dates: start: 20111031
  2. NEUROMULTIVIT [Concomitant]
     Indication: VITAMIN B COMPLEX DEFICIENCY
     Dosage: 2 TABLET
     Route: 048
     Dates: start: 20120201
  3. ALLAPININA [Concomitant]
     Indication: ARRHYTHMIA
     Dosage: 50 MILLIGRAM
     Route: 048
     Dates: start: 20110901
  4. VIDAZA [Suspect]
     Dosage: 88.5 MILLIGRAM/SQ. METER
     Route: 058
     Dates: start: 20120301, end: 20120302
  5. VFEND [Concomitant]
     Indication: ASPERGILLOSIS
     Dosage: 400 MILLIGRAM
     Route: 048
     Dates: start: 20120119, end: 20120222

REACTIONS (3)
  - BACTERIAL SEPSIS [None]
  - ENDOCARDITIS BACTERIAL [None]
  - SEPSIS [None]
